FAERS Safety Report 22264544 (Version 1)
Quarter: 2023Q2

REPORT INFORMATION
  Report Type: Spontaneous
  Country: US (occurrence: None)
  Receive Date: 20230426
  Receipt Date: 20230426
  Transmission Date: 20230722
  Serious: Yes (Death)
  Sender: FDA-Public Use
  Company Number: None

PATIENT
  Age: 84 Year
  Sex: Male
  Weight: 79.83 kg

DRUGS (8)
  1. ERLOTINIB [Suspect]
     Active Substance: ERLOTINIB
     Indication: Lung carcinoma cell type unspecified stage 0
     Dosage: FREQUENCY : DAILY;?
     Route: 048
  2. AMLODIPINE [Concomitant]
  3. ATORVASTATIN [Concomitant]
  4. DUTASTERIDE [Concomitant]
     Active Substance: DUTASTERIDE
  5. LOSARTAN [Concomitant]
  6. SENNA [Concomitant]
     Active Substance: SENNA LEAF\SENNOSIDES\SENNOSIDES A AND B
  7. TRAMADOL [Concomitant]
  8. ZOLPIDEM [Concomitant]
     Active Substance: ZOLPIDEM TARTRATE

REACTIONS (1)
  - Death [None]
